FAERS Safety Report 4272817-8 (Version None)
Quarter: 2004Q1

REPORT INFORMATION
  Report Type: 
  Country: None (occurrence: None)
  Receive Date: 20040114
  Receipt Date: 20040106
  Transmission Date: 20041129
  Serious: Yes (Hospitalization, Other)
  Sender: FDA-Public Use
  Company Number: 2004001014

PATIENT
  Age: 49 Year
  Sex: Female

DRUGS (4)
  1. ZITHROMAX [Suspect]
     Indication: ENDODONTIC PROCEDURE
     Dosage: 250 MG (DAILY), ORAL
     Route: 048
     Dates: start: 20030129, end: 20030202
  2. PREDNISONE [Suspect]
     Indication: THROMBOCYTOPENIC PURPURA
     Dosage: 80 MG (DAILY)
     Dates: start: 20030201
  3. GLICLAZIDE [Concomitant]
  4. LEVOTHYROXINE SODIUM [Concomitant]

REACTIONS (9)
  - ASTHENIA [None]
  - BALANCE DISORDER [None]
  - BLOOD BLISTER [None]
  - DIFFICULTY IN WALKING [None]
  - DISTURBANCE IN ATTENTION [None]
  - ORAL MUCOSAL BLISTERING [None]
  - SLEEP DISORDER [None]
  - THROMBOCYTOPENIC PURPURA [None]
  - ULCER [None]
